FAERS Safety Report 11087533 (Version 1)
Quarter: 2015Q2

REPORT INFORMATION
  Report Type: Spontaneous
  Country: None (occurrence: None)
  Receive Date: 20150501
  Receipt Date: 20150501
  Transmission Date: 20150821
  Serious: No
  Sender: FDA-Public Use
  Company Number: None

PATIENT
  Age: 25 Year
  Sex: Female
  Weight: 63.5 kg

DRUGS (2)
  1. MIRENA [Suspect]
     Active Substance: LEVONORGESTREL
     Dates: start: 20150115, end: 20150430
  2. VITAMIN D [Concomitant]
     Active Substance: CHOLECALCIFEROL

REACTIONS (8)
  - Diarrhoea [None]
  - Feeling abnormal [None]
  - Heart rate increased [None]
  - Anxiety [None]
  - Nausea [None]
  - Medical device complication [None]
  - Coital bleeding [None]
  - Alcohol intolerance [None]

NARRATIVE: CASE EVENT DATE: 20150430
